FAERS Safety Report 8250374-9 (Version None)
Quarter: 2012Q1

REPORT INFORMATION
  Report Type: 
  Country: None (occurrence: None)
  Receive Date: 20120328
  Receipt Date: 20120316
  Transmission Date: 20120608
  Serious: Yes (Hospitalization)
  Sender: FDA-Public Use
  Company Number: 2012AP000753

PATIENT
  Age: 79 Year
  Sex: Female

DRUGS (1)
  1. LEVOFLOXACIN [Suspect]
     Indication: PRODUCT USED FOR UNKNOWN INDICATION
     Dosage: 9 DF; UNKNOWN; PO; TOTAL
     Route: 048
     Dates: start: 20120215, end: 20120216

REACTIONS (3)
  - SOMNOLENCE [None]
  - INCORRECT DOSE ADMINISTERED [None]
  - VOMITING [None]
